FAERS Safety Report 12833231 (Version 1)
Quarter: 2016Q4

REPORT INFORMATION
  Report Type: Spontaneous
  Country: US (occurrence: US)
  Receive Date: 20161010
  Receipt Date: 20161010
  Transmission Date: 20170207
  Serious: Yes (Hospitalization, Other)
  Sender: FDA-Public Use
  Company Number: US-SA-CAMP-1002377

PATIENT
  Age: 30 Year
  Sex: Female
  Weight: 56.24 kg

DRUGS (4)
  1. CAMPATH [Suspect]
     Active Substance: ALEMTUZUMAB
     Indication: MULTIPLE SCLEROSIS
     Dosage: 12 MG, QD, FOR 3 DAYS
     Route: 065
     Dates: start: 2010, end: 2010
  2. TRIVORA [Concomitant]
     Active Substance: ETHINYL ESTRADIOL\LEVONORGESTREL
     Indication: CONTRACEPTION
     Dosage: UNK
     Route: 065
  3. CAMPATH [Suspect]
     Active Substance: ALEMTUZUMAB
     Indication: MULTIPLE SCLEROSIS
     Dosage: 12 MG, QD, FOR 5 DAYS
     Route: 042
     Dates: start: 200709
  4. CAMPATH [Suspect]
     Active Substance: ALEMTUZUMAB
     Indication: MULTIPLE SCLEROSIS
     Dosage: 24 MG, QD, FOR 3 DAYS
     Route: 042
     Dates: start: 200809

REACTIONS (9)
  - Pneumonia [Unknown]
  - Serum ferritin increased [Unknown]
  - Goodpasture^s syndrome [Recovering/Resolving]
  - Escherichia urinary tract infection [Unknown]
  - Off label use [Unknown]
  - Hypertension [Unknown]
  - Multiple sclerosis relapse [Unknown]
  - Anaemia [Unknown]
  - Acute kidney injury [Unknown]

NARRATIVE: CASE EVENT DATE: 2012
